FAERS Safety Report 11204123 (Version 1)
Quarter: 2015Q2

REPORT INFORMATION
  Report Type: Report from Study
  Country: PK (occurrence: PK)
  Receive Date: 20150619
  Receipt Date: 20150619
  Transmission Date: 20150821
  Serious: Yes (Death)
  Sender: FDA-Public Use
  Company Number: PHHY2015PK071531

PATIENT
  Age: 66 Year
  Sex: Male

DRUGS (1)
  1. AFINITOR [Suspect]
     Active Substance: EVEROLIMUS
     Indication: RENAL CELL CARCINOMA
     Dosage: 10 MG
     Route: 048
     Dates: start: 20150520, end: 20150609

REACTIONS (1)
  - Death [Fatal]

NARRATIVE: CASE EVENT DATE: 20150611
